FAERS Safety Report 18136906 (Version 2)
Quarter: 2022Q4

REPORT INFORMATION
  Report Type: Spontaneous
  Country: US (occurrence: US)
  Receive Date: 20200812
  Receipt Date: 20221208
  Transmission Date: 20230113
  Serious: No
  Sender: FDA-Public Use
  Company Number: US-JNJFOC-20191130379

PATIENT

DRUGS (2)
  1. IMODIUM MULTI-SYMPTOM RELIEF [Suspect]
     Active Substance: DIMETHICONE\LOPERAMIDE HYDROCHLORIDE
     Indication: Colitis
     Route: 048
  2. BENEFIBER [Concomitant]
     Active Substance: STARCH, WHEAT

REACTIONS (2)
  - Contraindicated product administered [Unknown]
  - Product packaging issue [Unknown]
